FAERS Safety Report 5285623-2 (Version None)
Quarter: 2007Q1

REPORT INFORMATION
  Report Type: 
  Country: None (occurrence: None)
  Receive Date: 20070116
  Receipt Date: 20061129
  Transmission Date: 20070707
  Serious: No
  Sender: FDA-Public Use
  Company Number: 2006SP004204

PATIENT
  Age: 59 Year
  Sex: Male
  Weight: 137.4399 kg

DRUGS (7)
  1. LUNESTA [Suspect]
     Indication: SLEEP APNOEA SYNDROME
     Dosage: SEE IMAGE
     Route: 048
     Dates: start: 20061129, end: 20061129
  2. LUNESTA [Suspect]
     Indication: SLEEP APNOEA SYNDROME
     Dosage: SEE IMAGE
     Route: 048
     Dates: start: 20061127
  3. AMBIEN [Concomitant]
  4. PAXIL [Concomitant]
  5. ATENOLOL [Concomitant]
  6. SIMVASTATIN [Concomitant]
  7. VICODIN ES [Concomitant]

REACTIONS (1)
  - MIDDLE INSOMNIA [None]
